FAERS Safety Report 9524995 (Version 1)
Quarter: 2013Q1

REPORT INFORMATION
  Report Type: Spontaneous
  Country: US (occurrence: None)
  Receive Date: 20130313
  Receipt Date: 20130313
  Transmission Date: 20140127
  Serious: Yes (Other)
  Sender: FDA-Public Use
  Company Number: 1000037663

PATIENT
  Sex: Female

DRUGS (9)
  1. SAVELLA (MILNACIPRAN HYDROCHLORIDE (12.5 MILLIGRAM, TABLETS) [Suspect]
     Indication: FIBROMYALGIA
     Route: 048
     Dates: start: 20120806, end: 20120806
  2. NORCO (ACETAMINOPHEN, HYDROCODONE) (ACETAMINOPHEN, HYDROCODONE) [Concomitant]
  3. VALIUM (DIAZEPAM) (DIAZEPAM) [Concomitant]
  4. LEVOTHYROXINE (LEVOTHYROXINE SODIUM) (LEVOTHYROXINE SODIUM) [Concomitant]
  5. ORTHO NOVUM (CONLUNETT) (CONLUNETT) [Concomitant]
  6. MULTIVITAMIN (MULTIVITAMIN) (MULTIVITAMIN) [Concomitant]
  7. FISH OIL (FISH OIL) (FISH OIL) [Concomitant]
  8. VITAMIN B 12 (VITAMIN B 12) (VITAMIN B 12) [Concomitant]
  9. BUSPIRONE (BUSPIRONE) (BUSPIRONE) [Concomitant]

REACTIONS (1)
  - Urticaria [None]
